FAERS Safety Report 7282568-3 (Version None)
Quarter: 2011Q1

REPORT INFORMATION
  Report Type: 
  Country: None (occurrence: None)
  Receive Date: 20110209
  Receipt Date: 20110203
  Transmission Date: 20110831
  Serious: No
  Sender: FDA-Public Use
  Company Number: US-PFIZER INC-2011025154

PATIENT
  Sex: Female
  Weight: 77.098 kg

DRUGS (8)
  1. TRAZODONE [Concomitant]
     Indication: BACK PAIN
     Dosage: 50 MG, 1X/DAY
  2. NEURONTIN [Suspect]
     Dosage: INCREASED TO 7.5ML THREE TIMES A DAY AND 15ML AT BED TIME
  3. FIORICET [Concomitant]
     Indication: NEUROPATHY PERIPHERAL
  4. FIORICET [Concomitant]
     Indication: HEADACHE
     Dosage: UNK
  5. OFLOXACIN [Concomitant]
     Indication: FIBROMYALGIA
  6. NEURONTIN [Suspect]
     Dosage: 1 ML, 4X/DAY
  7. OFLOXACIN [Concomitant]
     Indication: MYALGIA
     Dosage: 800 MG, EVERY 8 HRS
  8. MONTELUKAST [Concomitant]
     Indication: HYPERSENSITIVITY
     Dosage: 10 MG, 1X/DAY

REACTIONS (1)
  - PRODUCT TASTE ABNORMAL [None]
